FAERS Safety Report 19264459 (Version 1)
Quarter: 2021Q2

REPORT INFORMATION
  Report Type: Spontaneous
  Country: US (occurrence: US)
  Receive Date: 20210517
  Receipt Date: 20210517
  Transmission Date: 20210717
  Serious: No
  Sender: FDA-Public Use
  Company Number: None

PATIENT
  Age: 72 Year
  Sex: Male
  Weight: 93.44 kg

DRUGS (2)
  1. RIVAROXABAN (RIVAROXABAN 20MG TAB) [Suspect]
     Active Substance: RIVAROXABAN
     Route: 048
     Dates: start: 20210129, end: 20210413
  2. ASPIRIN (ASPIRIN 81MG TAB,EC) [Suspect]
     Active Substance: ASPIRIN
     Route: 048
     Dates: start: 20210129

REACTIONS (2)
  - Haemorrhage [None]
  - Anaemia [None]

NARRATIVE: CASE EVENT DATE: 20210409
